FAERS Safety Report 18849556 (Version 1)
Quarter: 2021Q1

REPORT INFORMATION
  Report Type: Spontaneous
  Country: CN (occurrence: CN)
  Receive Date: 20210204
  Receipt Date: 20210204
  Transmission Date: 20210419
  Serious: Yes (Hospitalization, Other)
  Sender: FDA-Public Use
  Company Number: CN-TEVA-2021-CN-1874571

PATIENT
  Age: 36 Year
  Sex: Female

DRUGS (2)
  1. PREDNISONE ACETATE [Suspect]
     Active Substance: PREDNISONE ACETATE
     Indication: DIFFUSE PANBRONCHIOLITIS
     Dosage: DOSE: 30MG FOR 12 MONTHS WITH GRADUAL TAPERING TO 10MG DAILY AND THEN STOPPED
     Route: 065
  2. AZITHROMYCIN ANHYDROUS. [Suspect]
     Active Substance: AZITHROMYCIN ANHYDROUS
     Indication: DIFFUSE PANBRONCHIOLITIS
     Dosage: 500 MILLIGRAM DAILY;
     Route: 065

REACTIONS (3)
  - Diarrhoea [Unknown]
  - Pulmonary tuberculosis [Recovering/Resolving]
  - Pseudomonas infection [Recovering/Resolving]
